FAERS Safety Report 5571456-6 (Version None)
Quarter: 2007Q4

REPORT INFORMATION
  Report Type: 
  Country: None (occurrence: None)
  Receive Date: 20071219
  Receipt Date: 20071203
  Transmission Date: 20080405
  Serious: Yes (Hospitalization)
  Sender: FDA-Public Use
  Company Number: DSA_30967_2007

PATIENT
  Sex: Female

DRUGS (2)
  1. ATIVAN [Suspect]
     Indication: DRUG USE FOR UNKNOWN INDICATION
     Dosage: DF ORAL
     Route: 048
     Dates: start: 20070301, end: 20070301
  2. ROZEREM [Suspect]
     Indication: DRUG USE FOR UNKNOWN INDICATION
     Dosage: 8 MG 1X ORAL
     Route: 048

REACTIONS (2)
  - MIDDLE INSOMNIA [None]
  - SYNCOPE [None]
